APPROVED DRUG PRODUCT: DIAZEPAM
Active Ingredient: DIAZEPAM
Strength: 10MG
Dosage Form/Route: TABLET;ORAL
Application: A071322 | Product #001 | TE Code: AB
Applicant: IVAX PHARMACEUTICALS INC SUB TEVA PHARMACEUTICALS USA
Approved: Dec 10, 1986 | RLD: No | RS: No | Type: RX